FAERS Safety Report 5368663-4 (Version None)
Quarter: 2007Q2

REPORT INFORMATION
  Report Type: 
  Country: None (occurrence: None)
  Receive Date: 20070625
  Receipt Date: 20070425
  Transmission Date: 20071010
  Serious: No
  Sender: FDA-Public Use
  Company Number: US-BRISTOL-MYERS SQUIBB COMPANY-13646559

PATIENT
  Sex: Female
  Weight: 52 kg

DRUGS (6)
  1. ORENCIA [Suspect]
     Indication: RHEUMATOID ARTHRITIS
     Dates: start: 20060201
  2. MEVACOR [Concomitant]
  3. ALTACE [Concomitant]
  4. INSULIN [Concomitant]
  5. METHOTREXATE [Concomitant]
  6. PREDNISONE TAB [Concomitant]

REACTIONS (1)
  - WEIGHT DECREASED [None]
